FAERS Safety Report 5024828-2 (Version None)
Quarter: 2006Q2

REPORT INFORMATION
  Report Type: 
  Country: None (occurrence: None)
  Receive Date: 20060426
  Receipt Date: 20060113
  Transmission Date: 20061013
  Serious: Yes (Other)
  Sender: FDA-Public Use
  Company Number: 2006009035

PATIENT
  Age: 61 Year
  Sex: Female
  Weight: 64.8644 kg

DRUGS (8)
  1. LYRICA [Suspect]
     Indication: NEURALGIA
     Dosage: 75 MG (75 MG, 1 IN 1 D), ORAL
     Route: 048
     Dates: start: 20060110
  2. COZAAR [Concomitant]
  3. TAMBOCOR [Concomitant]
  4. ZYRTEC [Concomitant]
  5. XANAX [Concomitant]
  6. PROTONIX [Concomitant]
  7. MIACALCIN [Concomitant]
  8. LUNESTA [Concomitant]

REACTIONS (6)
  - ANXIETY [None]
  - FEELING ABNORMAL [None]
  - INSOMNIA [None]
  - NERVOUSNESS [None]
  - SOMNOLENCE [None]
  - THINKING ABNORMAL [None]
